FAERS Safety Report 4366510-0 (Version None)
Quarter: 2004Q2

REPORT INFORMATION
  Report Type: 
  Country: None (occurrence: None)
  Receive Date: 20040527
  Receipt Date: 20040430
  Transmission Date: 20050107
  Serious: No
  Sender: FDA-Public Use
  Company Number: US-BRISTOL-MYERS SQUIBB COMPANY-12575833

PATIENT
  Age: 56 Year
  Sex: Male
  Weight: 97 kg

DRUGS (14)
  1. ERBITUX [Suspect]
     Indication: COLON CANCER METASTATIC
     Route: 042
     Dates: start: 20040423, end: 20040423
  2. ALOXI [Concomitant]
     Indication: PREMEDICATION
     Route: 042
     Dates: start: 20040423, end: 20040423
  3. BENADRYL [Concomitant]
     Indication: PREMEDICATION
     Route: 042
     Dates: start: 20040423, end: 20040423
  4. CIMETIDINE INJ [Concomitant]
     Indication: PREMEDICATION
     Route: 042
     Dates: start: 20040423, end: 20040423
  5. DECADRON [Concomitant]
     Indication: PREMEDICATION
     Route: 042
     Dates: start: 20040423, end: 20040423
  6. TYLENOL [Concomitant]
     Indication: PREMEDICATION
     Route: 048
     Dates: start: 20040423, end: 20040423
  7. COMPAZINE [Concomitant]
  8. COUMADIN [Concomitant]
  9. EMEND [Concomitant]
  10. FLUOROURACIL [Concomitant]
  11. LEUCOVORIN CALCIUM [Concomitant]
  12. OXALIPLATIN [Concomitant]
  13. POTASSIUM [Concomitant]
  14. PRILOSEC [Concomitant]

REACTIONS (1)
  - RASH [None]
